FAERS Safety Report 5004418-8 (Version None)
Quarter: 2006Q2

REPORT INFORMATION
  Report Type: 
  Country: None (occurrence: None)
  Receive Date: 20060517
  Receipt Date: 20051118
  Transmission Date: 20061013
  Serious: Yes (Life-Threatening)
  Sender: FDA-Public Use
  Company Number: PHMT2005CA00662

PATIENT
  Age: 71 Year
  Sex: Female
  Weight: 71.6 kg

DRUGS (12)
  1. GLEEVEC [Suspect]
     Indication: GASTROINTESTINAL STROMAL TUMOUR
     Dosage: 600 MG DAILY
     Route: 048
     Dates: start: 20040428, end: 20051006
  2. GLEEVEC [Suspect]
     Dosage: 100 MG/DAY
     Route: 048
     Dates: start: 20040203, end: 20040427
  3. LOSEC [Concomitant]
     Dosage: 20MG BID
     Dates: start: 20020101
  4. METFORMIN [Concomitant]
     Dosage: 850 MG TID
     Dates: start: 20020101
  5. GLYBURIDE [Concomitant]
     Dosage: 5 MG BID
     Dates: start: 20020101
  6. MISOPROSTOL [Concomitant]
     Dosage: 100 UG DAILY
     Dates: start: 20020101
  7. AMLODIPINE [Concomitant]
     Dosage: 2.5 MG DAILY
     Dates: start: 20020101
  8. RAMIPRIL [Concomitant]
     Dosage: 5 MG QOD
     Dates: start: 20020101
  9. LIPITOR [Concomitant]
     Dosage: 40 MG QOD
     Dates: start: 20020101
  10. NITROSTAT [Concomitant]
     Dosage: 0.3 MG PRN
     Dates: start: 20020101
  11. LASIX [Concomitant]
     Dosage: 20 MG PRN
     Dates: start: 20051101
  12. ASPIRIN [Concomitant]
     Dosage: 81 MG BID
     Dates: start: 20020101

REACTIONS (15)
  - ACUTE LEUKAEMIA [None]
  - ACUTE MONOCYTIC LEUKAEMIA [None]
  - GASTROINTESTINAL STROMAL TUMOUR [None]
  - HAEMOGLOBIN DECREASED [None]
  - HERPES SIMPLEX [None]
  - HYPOCALCAEMIA [None]
  - HYPOGLYCAEMIA [None]
  - HYPOXIA [None]
  - KARYOTYPE ANALYSIS ABNORMAL [None]
  - LUNG INFILTRATION [None]
  - MYELODYSPLASTIC SYNDROME [None]
  - NEUTROPENIA [None]
  - PANCYTOPENIA [None]
  - PYREXIA [None]
  - THROMBOCYTOPENIA [None]
